FAERS Safety Report 6713306-8 (Version None)
Quarter: 2010Q2

REPORT INFORMATION
  Report Type: 
  Country: None (occurrence: None)
  Receive Date: 20100506
  Receipt Date: 20100427
  Transmission Date: 20101027
  Serious: Yes (Hospitalization, Other)
  Sender: FDA-Public Use
  Company Number: US-ASTRAZENECA-2010SE18781

PATIENT
  Age: 87 Year
  Sex: Female

DRUGS (2)
  1. NEXIUM [Suspect]
     Route: 048
  2. THYROID MEDICATION [Concomitant]

REACTIONS (5)
  - ABDOMINAL HERNIA [None]
  - DECREASED APPETITE [None]
  - FALL [None]
  - POSTOPERATIVE WOUND INFECTION [None]
  - WRIST FRACTURE [None]
